FAERS Safety Report 15234952 (Version 1)
Quarter: 2018Q3

REPORT INFORMATION
  Report Type: Spontaneous
  Country: US (occurrence: US)
  Receive Date: 20180803
  Receipt Date: 20180803
  Transmission Date: 20181010
  Serious: Yes (Other)
  Sender: FDA-Public Use
  Company Number: US-ACCORD-065256

PATIENT
  Age: 53 Year
  Sex: Female

DRUGS (13)
  1. ALOXI [Concomitant]
     Active Substance: PALONOSETRON HYDROCHLORIDE
  2. TYLENOL [Concomitant]
     Active Substance: ACETAMINOPHEN
  3. EMEND [Concomitant]
     Active Substance: APREPITANT
  4. NEULASTA [Concomitant]
     Active Substance: PEGFILGRASTIM
  5. CARVEDILOL/CARVEDILOL HYDROCHLODRIDE [Concomitant]
     Dates: start: 2008
  6. HERCEPTIN [Suspect]
     Active Substance: TRASTUZUMAB
     Indication: BREAST CANCER
     Route: 042
     Dates: start: 20151013, end: 20160126
  7. PARAPLATIN [Suspect]
     Active Substance: CARBOPLATIN
     Indication: BREAST CANCER
     Route: 042
     Dates: start: 20151013, end: 20160126
  8. DOCETAXEL ACCORD [Suspect]
     Active Substance: DOCETAXEL
     Indication: BREAST CANCER
     Route: 042
     Dates: start: 20151013, end: 20160126
  9. HYDROCHLOROTHIAZIDE. [Concomitant]
     Active Substance: HYDROCHLOROTHIAZIDE
     Dates: start: 2008
  10. ROSUVASTATIN/ROSUVASTATIN CALCIUM [Concomitant]
     Dates: start: 2008
  11. OLMESARTAN [Concomitant]
     Active Substance: OLMESARTAN
     Dates: start: 2008
  12. DECADRON [Concomitant]
     Active Substance: DEXAMETHASONE
  13. BENADRYL [Concomitant]
     Active Substance: DIPHENHYDRAMINE HYDROCHLORIDE

REACTIONS (1)
  - Alopecia [Not Recovered/Not Resolved]

NARRATIVE: CASE EVENT DATE: 201510
